FAERS Safety Report 16175763 (Version 1)
Quarter: 2019Q2

REPORT INFORMATION
  Report Type: Spontaneous
  Country: US (occurrence: US)
  Receive Date: 20190409
  Receipt Date: 20190409
  Transmission Date: 20190711
  Serious: No
  Sender: FDA-Public Use
  Company Number: US-BIOGEN-2019BI00721460

PATIENT
  Sex: Female

DRUGS (1)
  1. PLEGRIDY [Suspect]
     Active Substance: PEGINTERFERON BETA-1A
     Indication: MULTIPLE SCLEROSIS
     Route: 058
     Dates: start: 20160317, end: 20190205

REACTIONS (6)
  - Thinking abnormal [Unknown]
  - Influenza [Unknown]
  - Anger [Unknown]
  - Mood altered [Unknown]
  - Pain [Unknown]
  - Feeling abnormal [Unknown]
